FAERS Safety Report 5199177-2 (Version None)
Quarter: 2007Q1

REPORT INFORMATION
  Report Type: 
  Country: None (occurrence: None)
  Receive Date: 20070104
  Receipt Date: 20061227
  Transmission Date: 20070707
  Serious: Yes (Hospitalization)
  Sender: FDA-Public Use
  Company Number: IT-ABBOTT-06P-083-0354439-00

PATIENT
  Sex: Female

DRUGS (7)
  1. VECLAM [Suspect]
     Indication: PNEUMONIA BACTERIAL
     Route: 048
     Dates: start: 20060625, end: 20060701
  2. SIROLIMUS [Concomitant]
     Indication: PROPHYLAXIS AGAINST TRANSPLANT REJECTION
     Dosage: 1 MG/ML
     Route: 048
     Dates: start: 20050501, end: 20060701
  3. PREDNISONE TAB [Concomitant]
     Indication: DRUG USE FOR UNKNOWN INDICATION
  4. GLYCERYL TRINITRATE [Concomitant]
     Indication: DRUG USE FOR UNKNOWN INDICATION
     Dosage: 10 MG/24 H
  5. OMEPRAZOLE [Concomitant]
     Indication: DRUG USE FOR UNKNOWN INDICATION
  6. CALCITRIOL [Concomitant]
     Indication: DRUG USE FOR UNKNOWN INDICATION
  7. CARVEDILOL [Concomitant]
     Indication: DRUG USE FOR UNKNOWN INDICATION

REACTIONS (3)
  - ADVERSE DRUG REACTION [None]
  - DRUG LEVEL INCREASED [None]
  - RENAL IMPAIRMENT [None]
